FAERS Safety Report 6709786-4 (Version None)
Quarter: 2010Q2

REPORT INFORMATION
  Report Type: 
  Country: None (occurrence: None)
  Receive Date: 20100504
  Receipt Date: 20100503
  Transmission Date: 20101027
  Serious: Yes (Other)
  Sender: FDA-Public Use
  Company Number: A0857664A

PATIENT
  Age: 56 Year
  Sex: Female

DRUGS (1)
  1. ALLI [Suspect]
     Indication: WEIGHT LOSS DIET
     Route: 048
     Dates: start: 20091227, end: 20100121

REACTIONS (2)
  - HEPATIC ENZYME INCREASED [None]
  - LIVER DISORDER [None]
